FAERS Safety Report 19749821 (Version 1)
Quarter: 2021Q3

REPORT INFORMATION
  Report Type: Spontaneous
  Country: US (occurrence: US)
  Receive Date: 20210826
  Receipt Date: 20210826
  Transmission Date: 20211014
  Serious: Yes (Other)
  Sender: FDA-Public Use
  Company Number: None

PATIENT
  Age: 14 Year
  Sex: Female
  Weight: 49 kg

DRUGS (2)
  1. IRON SUCROSE [Suspect]
     Active Substance: IRON SUCROSE
     Indication: IRON DEFICIENCY ANAEMIA
     Dosage: ?          OTHER FREQUENCY:ONCE;?
     Route: 042
     Dates: start: 20210518
  2. HYDROCORTISONE INJECTION [Concomitant]
     Dates: start: 20210803

REACTIONS (5)
  - Skin discolouration [None]
  - Urticaria [None]
  - Oedema [None]
  - Livedo reticularis [None]
  - Product quality issue [None]

NARRATIVE: CASE EVENT DATE: 20210803
